FAERS Safety Report 5622782-3 (Version None)
Quarter: 2008Q1

REPORT INFORMATION
  Report Type: 
  Country: None (occurrence: None)
  Receive Date: 20080212
  Receipt Date: 20080117
  Transmission Date: 20080703
  Serious: No
  Sender: FDA-Public Use
  Company Number: US-BOEHRINGER INGELHEIM GMBH, GERMANY-2008-BP-00902BP

PATIENT
  Sex: Female

DRUGS (4)
  1. SPIRIVA [Suspect]
     Indication: CHRONIC OBSTRUCTIVE PULMONARY DISEASE
     Route: 055
     Dates: start: 20040101, end: 20080110
  2. SPIRIVA [Suspect]
     Route: 055
     Dates: start: 20080117
  3. FORADIL [Concomitant]
     Route: 048
  4. NEBULIZER [Concomitant]
     Route: 048

REACTIONS (3)
  - CONSTIPATION [None]
  - DRY MOUTH [None]
  - GLAUCOMA [None]
